FAERS Safety Report 9938882 (Version 1)
Quarter: 2014Q1

REPORT INFORMATION
  Report Type: Spontaneous
  Country: US (occurrence: US)
  Receive Date: 20140303
  Receipt Date: 20140303
  Transmission Date: 20141002
  Serious: No
  Sender: FDA-Public Use
  Company Number: US-ABBVIE-13P-163-1038294-00

PATIENT
  Sex: Female
  Weight: 59.02 kg

DRUGS (9)
  1. HUMIRA [Suspect]
     Indication: RHEUMATOID ARTHRITIS
     Dates: start: 2009
  2. CATAPRES [Concomitant]
     Indication: HYPERTENSION
  3. CYCLOBENZAPRINE [Concomitant]
     Indication: MUSCLE RELAXANT THERAPY
  4. HYDROCHLOROTHIAZIDE [Concomitant]
     Indication: HYPERTENSION
  5. POTASSIUM [Concomitant]
     Indication: SUPPLEMENTATION THERAPY
  6. LEXAPRO [Concomitant]
     Indication: DEPRESSION
  7. METOPROLOL [Concomitant]
     Indication: HYPERTENSION
  8. AMLODIPINE [Concomitant]
     Indication: HYPERTENSION
  9. VITAMIN B 12 [Concomitant]
     Indication: SUPPLEMENTATION THERAPY

REACTIONS (6)
  - Hair growth abnormal [Not Recovered/Not Resolved]
  - Libido increased [Not Recovered/Not Resolved]
  - Dementia [Not Recovered/Not Resolved]
  - Therapeutic response unexpected [Not Recovered/Not Resolved]
  - Therapeutic response unexpected [Not Recovered/Not Resolved]
  - Therapeutic response unexpected [Not Recovered/Not Resolved]
